FAERS Safety Report 22157289 (Version 1)
Quarter: 2023Q1

REPORT INFORMATION
  Report Type: Spontaneous
  Country: CN (occurrence: CN)
  Receive Date: 20230330
  Receipt Date: 20230330
  Transmission Date: 20230418
  Serious: Yes (Hospitalization, Other)
  Sender: FDA-Public Use
  Company Number: CN-SA-SAC20230329000367

PATIENT
  Age: 53 Year
  Sex: Female
  Weight: 50 kg

DRUGS (3)
  1. ELOXATIN [Suspect]
     Active Substance: OXALIPLATIN
     Indication: Neoplasm malignant
     Dosage: 190 MG, QD
     Route: 041
     Dates: start: 20230223, end: 20230224
  2. ELOXATIN [Suspect]
     Active Substance: OXALIPLATIN
     Dosage: 180 MG, Q3W
     Route: 041
     Dates: start: 20230113
  3. DEXTROSE [Concomitant]
     Active Substance: DEXTROSE
     Indication: Neoplasm malignant
     Dosage: 500 ML, QD
     Route: 041
     Dates: start: 20230223, end: 20230224

REACTIONS (2)
  - Loss of personal independence in daily activities [Recovering/Resolving]
  - Neurotoxicity [Recovering/Resolving]

NARRATIVE: CASE EVENT DATE: 20230316
